FAERS Safety Report 20068407 (Version 1)
Quarter: 2021Q4

REPORT INFORMATION
  Report Type: Spontaneous
  Country: US (occurrence: US)
  Receive Date: 20211115
  Receipt Date: 20211115
  Transmission Date: 20220303
  Serious: Yes (Other)
  Sender: FDA-Public Use
  Company Number: US-SA-SAC20211105000722

PATIENT
  Age: 56 Year
  Sex: Male

DRUGS (1)
  1. ZANTAC [Suspect]
     Active Substance: RANITIDINE HYDROCHLORIDE
     Indication: Dyspepsia
     Dosage: 150 MG ; FREQUENCY: OTHER;STARTDATE:01/1987; END DATE:01/2014
     Dates: start: 198701, end: 201401

REACTIONS (2)
  - Hepatic failure [Unknown]
  - Lipoma [Unknown]

NARRATIVE: CASE EVENT DATE: 20180101
